FAERS Safety Report 4580692-7 (Version None)
Quarter: 2005Q1

REPORT INFORMATION
  Report Type: 
  Country: None (occurrence: None)
  Receive Date: 20050127
  Receipt Date: 20040819
  Transmission Date: 20050727
  Serious: No
  Sender: FDA-Public Use
  Company Number: USA040875959

PATIENT
  Age: 46 Year
  Sex: Male
  Weight: 150 kg

DRUGS (2)
  1. STRATTERA [Suspect]
     Indication: ATTENTION DEFICIT/HYPERACTIVITY DISORDER
     Dosage: 80 MG DAY
     Dates: start: 20030101
  2. ALBUTEROL [Concomitant]

REACTIONS (4)
  - CONSTIPATION [None]
  - NIGHTMARE [None]
  - PARALYSIS [None]
  - WEIGHT DECREASED [None]
